FAERS Safety Report 18726055 (Version 1)
Quarter: 2021Q1

REPORT INFORMATION
  Report Type: Spontaneous
  Country: FR (occurrence: FR)
  Receive Date: 20210111
  Receipt Date: 20210111
  Transmission Date: 20210419
  Serious: Yes (Other)
  Sender: FDA-Public Use
  Company Number: FR-TEVA-2021-FR-1866056

PATIENT
  Age: 76 Year
  Sex: Female
  Weight: 72 kg

DRUGS (1)
  1. CAPECITABINE. [Suspect]
     Active Substance: CAPECITABINE
     Indication: BREAST CANCER
     Dosage: 3600 MG
     Route: 048
     Dates: start: 20200824, end: 20201107

REACTIONS (1)
  - Pain in jaw [Recovered/Resolved]

NARRATIVE: CASE EVENT DATE: 20201105
